FAERS Safety Report 18716878 (Version 4)
Quarter: 2023Q1

REPORT INFORMATION
  Report Type: Spontaneous
  Country: US (occurrence: US)
  Receive Date: 20210108
  Receipt Date: 20230317
  Transmission Date: 20230418
  Serious: Yes (Other)
  Sender: FDA-Public Use
  Company Number: US-PFIZER INC-2021004064

PATIENT
  Age: 74 Year
  Sex: Female

DRUGS (1)
  1. IBRANCE [Suspect]
     Active Substance: PALBOCICLIB
     Indication: Breast cancer female
     Dosage: 75 MG, CYCLIC (1 TABLET DAILY FOR 21 DAYS ON, 7 DAYS OFF)

REACTIONS (3)
  - COVID-19 [Unknown]
  - Feeling abnormal [Unknown]
  - Hypoacusis [Unknown]

NARRATIVE: CASE EVENT DATE: 20201101
